FAERS Safety Report 25658255 (Version 4)
Quarter: 2025Q3

REPORT INFORMATION
  Report Type: Report from Study
  Country: US (occurrence: US)
  Receive Date: 20250808
  Receipt Date: 20250926
  Transmission Date: 20251021
  Serious: No
  Sender: SUNOVION
  Company Number: US-SUMITOMO PHARMA SWITZERLAND GMBH-2025SPA009177

PATIENT
  Age: 73 Year
  Sex: Male

DRUGS (5)
  1. ORGOVYX [Suspect]
     Active Substance: RELUGOLIX
     Indication: Prostate cancer
     Route: 048
  2. ORGOVYX [Suspect]
     Active Substance: RELUGOLIX
     Route: 048
  3. NIFEDIPINE [Concomitant]
     Active Substance: NIFEDIPINE
     Indication: Blood pressure abnormal
     Dosage: 30 MG, BID
     Route: 048
  4. PROTEIN [Concomitant]
     Active Substance: PROTEIN
  5. TERBINAFINE [Concomitant]
     Active Substance: TERBINAFINE

REACTIONS (10)
  - Pain [Unknown]
  - Feeling abnormal [Unknown]
  - Chest discomfort [Unknown]
  - Dizziness exertional [Unknown]
  - Dizziness [Unknown]
  - Headache [Unknown]
  - Hyperhidrosis [Unknown]
  - Hot flush [Unknown]
  - Fatigue [Unknown]
  - Arthralgia [Unknown]
